FAERS Safety Report 18110342 (Version 2)
Quarter: 2020Q3

REPORT INFORMATION
  Report Type: Spontaneous
  Country: NL (occurrence: NL)
  Receive Date: 20200804
  Receipt Date: 20200818
  Transmission Date: 20201103
  Serious: Yes (Other)
  Sender: FDA-Public Use
  Company Number: NL-BAUSCH-BL-2020-021921

PATIENT
  Age: 27 Year
  Sex: Female

DRUGS (2)
  1. DEXAMETHASONE. [Suspect]
     Active Substance: DEXAMETHASONE
     Indication: FUSARIUM INFECTION
     Route: 047
  2. DEXAMETHASONE. [Suspect]
     Active Substance: DEXAMETHASONE
     Indication: KERATITIS FUNGAL

REACTIONS (3)
  - Fusarium infection [Recovering/Resolving]
  - Disease progression [Recovering/Resolving]
  - Keratitis fungal [Recovering/Resolving]
